FAERS Safety Report 22311664 (Version 5)
Quarter: 2024Q2

REPORT INFORMATION
  Report Type: Spontaneous
  Country: US (occurrence: US)
  Receive Date: 20230511
  Receipt Date: 20240425
  Transmission Date: 20240716
  Serious: Yes (Other)
  Sender: FDA-Public Use
  Company Number: US-SA-SAC20230510000981

PATIENT
  Age: 75 Year
  Sex: Female

DRUGS (3)
  1. DUPIXENT [Suspect]
     Active Substance: DUPILUMAB
     Indication: Asthma
     Dosage: 300 MG, QOW
     Route: 058
     Dates: start: 202112
  2. LYRICA [Suspect]
     Active Substance: PREGABALIN
     Dosage: 100 MG
  3. LYRICA [Suspect]
     Active Substance: PREGABALIN
     Dosage: 50 MG, TID

REACTIONS (3)
  - Atrial fibrillation [Unknown]
  - Oedema peripheral [Recovering/Resolving]
  - Contusion [Not Recovered/Not Resolved]

NARRATIVE: CASE EVENT DATE: 20230401
